FAERS Safety Report 12711396 (Version 2)
Quarter: 2016Q3

REPORT INFORMATION
  Report Type: Spontaneous
  Country: US (occurrence: US)
  Receive Date: 20160902
  Receipt Date: 20160916
  Transmission Date: 20161109
  Serious: Yes (Death)
  Sender: FDA-Public Use
  Company Number: US-ACTELION-A-NJ2016-141412

PATIENT
  Age: 64 Year
  Sex: Male

DRUGS (7)
  1. PRAVASTATIN. [Concomitant]
     Active Substance: PRAVASTATIN
     Dosage: 10 MG, UNK
     Dates: start: 20151215
  2. APIXABAN [Concomitant]
     Active Substance: APIXABAN
     Dosage: 2.5 MG, BID
     Dates: start: 20150816
  3. OPSUMIT [Suspect]
     Active Substance: MACITENTAN
     Indication: PULMONARY ARTERIAL HYPERTENSION
     Dosage: 10 MG, QD
     Route: 048
     Dates: start: 20150915
  4. MIDORINE [Concomitant]
     Active Substance: MIDODRINE
     Dosage: 2.5 MG, UNK
  5. TADALAFIL [Concomitant]
     Active Substance: TADALAFIL
     Dosage: 10 MG, UNK
     Dates: start: 20151215
  6. CHOLECALCIFEROL [Concomitant]
     Active Substance: CHOLECALCIFEROL
     Dosage: 2000 U, QD
  7. SEVELAMER [Concomitant]
     Active Substance: SEVELAMER
     Dosage: 800 MG, 4 TABS TID

REACTIONS (1)
  - Death [Fatal]
